FAERS Safety Report 7290843-1 (Version None)
Quarter: 2011Q1

REPORT INFORMATION
  Report Type: 
  Country: None (occurrence: None)
  Receive Date: 20110214
  Receipt Date: 20101203
  Transmission Date: 20110831
  Serious: Yes (Death, Hospitalization)
  Sender: FDA-Public Use
  Company Number: US-ROCHE-759030

PATIENT
  Sex: Male

DRUGS (2)
  1. ERLOTINIB [Suspect]
     Indication: METASTATIC RENAL CELL CARCINOMA
     Route: 065
  2. BEVACIZUMAB [Suspect]
     Indication: METASTATIC RENAL CELL CARCINOMA
     Route: 065

REACTIONS (2)
  - DISEASE PROGRESSION [None]
  - HYPONATRAEMIA [None]
